FAERS Safety Report 9447953 (Version 2)
Quarter: 2013Q3

REPORT INFORMATION
  Report Type: Spontaneous
  Country: DE (occurrence: DE)
  Receive Date: 20130808
  Receipt Date: 20130829
  Transmission Date: 20140515
  Serious: Yes (Hospitalization, Other)
  Sender: FDA-Public Use
  Company Number: PHHY2013DE084984

PATIENT
  Age: 62 Year
  Sex: Female

DRUGS (9)
  1. TRILEPTAL [Suspect]
     Indication: EPILEPSY
     Dosage: 2100 MG DAILY
     Route: 048
     Dates: start: 2004, end: 201307
  2. TRILEPTAL [Suspect]
     Dosage: 1650 MG DAILY
     Route: 048
     Dates: start: 201307
  3. TRILEPTAL [Suspect]
     Dosage: 750 MG TRILEPTAL DOSAGE AT NOON
  4. KEPPRA [Suspect]
     Dosage: UNK UKN, UNK
     Dates: start: 20040617, end: 20121129
  5. LUTEINE [Concomitant]
     Indication: MACULOPATHY
     Dosage: 1 DF, DAILY
  6. LAMOTRIGINE [Concomitant]
     Indication: EPILEPSY
     Dosage: 25 MG, DAILY
     Dates: start: 20130718, end: 20130801
  7. LAMOTRIGINE [Concomitant]
     Dosage: 50 MG, DAILY
     Dates: start: 20130802, end: 20130808
  8. LAMOTRIGINE [Concomitant]
     Dosage: 75 MG, DAILY
     Dates: start: 20130809, end: 20130815
  9. LAMOTRIGINE [Concomitant]
     Dosage: 100 MG, DAILY
     Dates: start: 20130816, end: 20130822

REACTIONS (15)
  - Grand mal convulsion [Unknown]
  - Joint dislocation [Unknown]
  - Alcohol intolerance [Unknown]
  - Gastrointestinal disorder [Recovered/Resolved]
  - Gastric pH decreased [Unknown]
  - Convulsion [Unknown]
  - Depressed level of consciousness [Unknown]
  - Blood sodium decreased [Recovered/Resolved]
  - Diplopia [Recovered/Resolved]
  - Nausea [Unknown]
  - Fatigue [Unknown]
  - Dizziness [Unknown]
  - Depression [Unknown]
  - Arrhythmia [Unknown]
  - Drug ineffective [Unknown]
